FAERS Safety Report 8949419 (Version 1)
Quarter: 2012Q4

REPORT INFORMATION
  Report Type: 
  Country: CH (occurrence: CH)
  Receive Date: 20121206
  Receipt Date: 20121206
  Transmission Date: 20130627
  Serious: Yes (Hospitalization)
  Sender: FDA-Public Use
  Company Number: CH-TEVA-373441ISR

PATIENT
  Age: 71 Year
  Sex: Male
  Weight: 83 kg

DRUGS (14)
  1. ACTIQ [Suspect]
     Dosage: 2400 Microgram Daily; Reserve medication, max. 6 times per day
     Route: 048
     Dates: end: 20121102
  2. ACTIQ [Interacting]
     Dosage: 35.7143 Microgram Daily;
     Route: 062
     Dates: end: 20121102
  3. FENTANYL [Interacting]
  4. PALLADONE [Suspect]
     Dosage: 5.2 Milligram Daily;
     Route: 048
     Dates: end: 20121102
  5. SEROQUEL [Interacting]
     Dosage: 37.5 Milligram Daily; Discharge dose: 25 mg nocte/ 12.5 mg twice daily if agitated
     Route: 048
     Dates: end: 20121102
  6. TEMESTA [Interacting]
     Dosage: 1 Milligram Daily; Not longer administered at time of hospital discharge
     Route: 048
     Dates: end: 20121102
  7. CIPRALEX [Concomitant]
     Dosage: 20 Milligram Daily;
     Route: 048
  8. PREDNISON [Concomitant]
     Dosage: 5 Milligram Daily;
     Route: 048
  9. ASPIRIN CARDIO [Concomitant]
     Dosage: 100 Milligram Daily;
     Route: 048
  10. TOREM [Concomitant]
     Dosage: 10 Milligram Daily; Interrupted due to renal insufficiency
     Route: 048
  11. PLENDIL [Concomitant]
     Dosage: 10 Milligram Daily;
     Route: 048
  12. PANTOZOL [Concomitant]
     Dosage: 40 Milligram Daily;
     Route: 048
  13. MINAC [Concomitant]
     Dosage: 200 Milligram Daily; In therapy for 6 months
     Route: 048
  14. TARDYFERON [Concomitant]
     Dosage: 80 Milligram Daily;
     Route: 048

REACTIONS (3)
  - Toxicity to various agents [Recovered/Resolved]
  - Confusional state [Recovered/Resolved]
  - Drug interaction [Recovered/Resolved]
